FAERS Safety Report 26180383 (Version 1)
Quarter: 2025Q4

REPORT INFORMATION
  Report Type: Report from Study
  Country: KR (occurrence: KR)
  Receive Date: 20251219
  Receipt Date: 20251219
  Transmission Date: 20260118
  Serious: Yes (Other)
  Sender: ALCON
  Company Number: KR-SANTEN KOREA-2025-KOR-011127

PATIENT
  Age: 6 Decade
  Sex: Female

DRUGS (6)
  1. RHOPRESSA [Suspect]
     Active Substance: NETARSUDIL MESYLATE
     Indication: Open angle glaucoma
     Dosage: UNK
     Route: 047
  2. Bronag [Concomitant]
     Indication: Glaucoma
     Dosage: 5 ML
     Route: 047
     Dates: start: 20250625
  3. DORZOLAMIDE HYDROCHLORIDE\TIMOLOL MALEATE [Concomitant]
     Active Substance: DORZOLAMIDE HYDROCHLORIDE\TIMOLOL MALEATE
     Indication: Glaucoma
     Dosage: 10 ML
     Route: 047
     Dates: start: 20220714
  4. OPTIPREDI [Concomitant]
     Indication: Glaucoma
     Dosage: UNK
     Route: 047
     Dates: start: 20250625
  5. REVAK [Concomitant]
     Indication: Glaucoma
     Dosage: 0.4 ML
     Route: 047
     Dates: start: 20250625
  6. VIGAMOX [Concomitant]
     Active Substance: MOXIFLOXACIN HYDROCHLORIDE
     Indication: Glaucoma
     Dosage: 0.5%
     Route: 047
     Dates: start: 20250625

REACTIONS (1)
  - Endophthalmitis [Recovered/Resolved]

NARRATIVE: CASE EVENT DATE: 20251204
